FAERS Safety Report 8314093-2 (Version None)
Quarter: 2012Q2

REPORT INFORMATION
  Report Type: 
  Country: None (occurrence: None)
  Receive Date: 20120426
  Receipt Date: 20120418
  Transmission Date: 20120825
  Serious: Yes (Hospitalization, Other)
  Sender: FDA-Public Use
  Company Number: JP-PFIZER INC-2012096540

PATIENT
  Age: 48 Year
  Sex: Male

DRUGS (1)
  1. METHYLPREDNISOLONE SODIUM SUCCINATE [Suspect]
     Indication: TOLOSA-HUNT SYNDROME
     Dosage: 1000 MG/DAY X 3 DAYS, TWICE
     Dates: start: 20120401

REACTIONS (2)
  - PHAEOCHROMOCYTOMA [None]
  - HYPERGLYCAEMIA [None]
